FAERS Safety Report 19573294 (Version 2)
Quarter: 2025Q4

REPORT INFORMATION
  Report Type: Spontaneous
  Country: CA (occurrence: None)
  Receive Date: 20210717
  Receipt Date: 20251216
  Transmission Date: 20260118
  Serious: Yes (Hospitalization, Other)
  Sender: AUROBINDO
  Company Number: CA-AUROBINDO-AUR-APL-2021-029514

PATIENT
  Age: 60 Year
  Sex: Male

DRUGS (2)
  1. MEROPENEM [Suspect]
     Active Substance: MEROPENEM
     Indication: Product used for unknown indication
     Dosage: UNK
     Route: 065
  2. PIPERACILLIN [Suspect]
     Active Substance: PIPERACILLIN
     Indication: Pyelonephritis acute
     Dosage: UNK
     Route: 065

REACTIONS (6)
  - Rash erythematous [Unknown]
  - Leukopenia [Unknown]
  - Thrombocytopenia [Unknown]
  - Delirium [Unknown]
  - Anaemia [Unknown]
  - Pyrexia [Unknown]
